FAERS Safety Report 18282287 (Version 1)
Quarter: 2020Q3

REPORT INFORMATION
  Report Type: Spontaneous
  Country: US (occurrence: US)
  Receive Date: 20200917
  Receipt Date: 20200917
  Transmission Date: 20201103
  Serious: Yes (Other)
  Sender: FDA-Public Use
  Company Number: None

PATIENT
  Age: 41 Year
  Sex: Female
  Weight: 96.89 kg

DRUGS (1)
  1. LEVOTHYROXINE 137MG [Suspect]
     Active Substance: LEVOTHYROXINE
     Route: 048
     Dates: start: 2019

REACTIONS (1)
  - Laboratory test abnormal [None]

NARRATIVE: CASE EVENT DATE: 2019
